FAERS Safety Report 24676889 (Version 2)
Quarter: 2024Q4

REPORT INFORMATION
  Report Type: Spontaneous
  Country: US (occurrence: US)
  Receive Date: 20241128
  Receipt Date: 20241206
  Transmission Date: 20250115
  Serious: Yes (Hospitalization, Other)
  Sender: JOHNSON AND JOHNSON
  Company Number: None

PATIENT
  Age: 81 Year
  Sex: Female

DRUGS (5)
  1. ACETAMINOPHEN [Suspect]
     Active Substance: ACETAMINOPHEN
     Indication: Pain
     Dosage: 650 MILLIGRAM, TWICE A DAY
     Route: 065
  2. FIORICET [Suspect]
     Active Substance: ACETAMINOPHEN\BUTALBITAL\CAFFEINE
     Indication: Pain
     Dosage: TABLETS OF FIORICET (APAP 600 MG) Q 8 HOURS AT HOME
     Route: 065
  3. FIORICET [Suspect]
     Active Substance: ACETAMINOPHEN\BUTALBITAL\CAFFEINE
     Dosage: IN HOSPITAL
     Route: 065
  4. FIORICET [Suspect]
     Active Substance: ACETAMINOPHEN\BUTALBITAL\CAFFEINE
     Dosage: 2 DOSAGE FORM, TWICE A DAY, IN HOSPITAL
     Route: 065
  5. ACETAMINOPHEN [Suspect]
     Active Substance: ACETAMINOPHEN
     Indication: Pain
     Dosage: 1000 MILLIGRAM, TWICE A DAY, IN HOSPITAL

REACTIONS (3)
  - Metabolic acidosis [Recovering/Resolving]
  - Inappropriate schedule of product administration [Unknown]
  - Product administration error [Unknown]
